FAERS Safety Report 25921742 (Version 2)
Quarter: 2025Q4

REPORT INFORMATION
  Report Type: Report from Study
  Country: US (occurrence: US)
  Receive Date: 20251014
  Receipt Date: 20251015
  Transmission Date: 20260118
  Serious: Yes (Hospitalization, Other)
  Sender: ABBVIE
  Company Number: US-ABBVIE-6501193

PATIENT
  Age: 79 Year
  Sex: Male

DRUGS (1)
  1. VYALEV [Suspect]
     Active Substance: FOSCARBIDOPA\FOSLEVODOPA
     Indication: Product used for unknown indication
     Route: 058
     Dates: start: 20250217

REACTIONS (5)
  - Spinal fracture [Not Recovered/Not Resolved]
  - Colostomy [Unknown]
  - Infusion site erythema [Unknown]
  - Cystitis [Not Recovered/Not Resolved]
  - Infusion site irritation [Unknown]

NARRATIVE: CASE EVENT DATE: 20250101
